FAERS Safety Report 17424173 (Version 2)
Quarter: 2020Q1

REPORT INFORMATION
  Report Type: Spontaneous
  Country: FR (occurrence: FR)
  Receive Date: 20200217
  Receipt Date: 20200218
  Transmission Date: 20200409
  Serious: Yes (Death)
  Sender: FDA-Public Use
  Company Number: FR-ORION CORPORATION ORION PHARMA-20_00008462

PATIENT
  Age: 82 Year
  Sex: Female
  Weight: 67 kg

DRUGS (15)
  1. ZOPICLONE [Concomitant]
     Active Substance: ZOPICLONE
     Dosage: 1 TABLET IF NEEDED
     Route: 048
  2. CALTRATE WITH VITAMIN D [Concomitant]
     Active Substance: CALCIUM CARBONATE\CHOLECALCIFEROL
     Dosage: STRENGTH: 600 MG/400 IU
     Route: 048
  3. PREVISCAN [Concomitant]
     Route: 048
  4. LAMALINE [Concomitant]
     Dosage: IF NECESSARY
     Route: 048
  5. IMETH [Suspect]
     Active Substance: METHOTREXATE SODIUM
     Indication: RHEUMATOID ARTHRITIS
     Route: 048
     Dates: start: 2013, end: 20191223
  6. DIPROSONE [Concomitant]
     Active Substance: BETAMETHASONE DIPROPIONATE
     Route: 003
  7. PANTOPRAZOLE [Concomitant]
     Active Substance: PANTOPRAZOLE
     Route: 048
  8. CORTANCYL [Concomitant]
     Active Substance: PREDNISONE
     Route: 048
  9. ATARAX [Concomitant]
     Active Substance: HYDROXYZINE HYDROCHLORIDE
     Dosage: 1 TABLET IF NEEDED
     Route: 048
  10. DICLOFENAC [Concomitant]
     Active Substance: DICLOFENAC
     Route: 003
  11. PROLIA [Concomitant]
     Active Substance: DENOSUMAB
     Route: 057
  12. DOLIPRANE [Concomitant]
     Active Substance: ACETAMINOPHEN
     Route: 048
  13. SPECIAFOLDINE [Concomitant]
     Active Substance: FOLIC ACID
     Route: 048
     Dates: start: 2013
  14. TENORETIC [Concomitant]
     Active Substance: ATENOLOL\CHLORTHALIDONE
     Dosage: STRENGTH: 50 MG-12.5 MG
     Route: 048
  15. LEVOTHYROX [Concomitant]
     Active Substance: LEVOTHYROXINE
     Route: 048

REACTIONS (2)
  - Acute kidney injury [Fatal]
  - Pancytopenia [Fatal]

NARRATIVE: CASE EVENT DATE: 20191225
